FAERS Safety Report 7352796-7 (Version None)
Quarter: 2011Q1

REPORT INFORMATION
  Report Type: 
  Country: None (occurrence: None)
  Receive Date: 20110315
  Receipt Date: 20110228
  Transmission Date: 20110831
  Serious: Yes (Hospitalization, Other)
  Sender: FDA-Public Use
  Company Number: PHHY2009CA01017

PATIENT
  Sex: Male

DRUGS (4)
  1. SANDOSTATIN LAR [Suspect]
     Indication: CARCINOID TUMOUR
     Dosage: 30 MG EVERY 4 WEEKS
     Route: 030
     Dates: start: 20050505
  2. SANDOSTATIN LAR [Suspect]
     Dosage: 30 MG EVERY 4 WEEKS
     Route: 030
     Dates: start: 20051027
  3. SANDOSTATIN LAR [Suspect]
     Dosage: 30 MG, QMO
  4. SANDOSTATIN LAR [Suspect]
     Dosage: 30 MG, EVERY 4 WEEKS
     Route: 030

REACTIONS (19)
  - APHONIA [None]
  - ASTHENIA [None]
  - BALANCE DISORDER [None]
  - INJECTION SITE PAIN [None]
  - NAUSEA [None]
  - DIARRHOEA [None]
  - INJECTION SITE SWELLING [None]
  - COUGH [None]
  - COLON CANCER [None]
  - DIZZINESS [None]
  - INTESTINAL OBSTRUCTION [None]
  - RECTAL HAEMORRHAGE [None]
  - BLOOD PRESSURE SYSTOLIC INCREASED [None]
  - ABDOMINAL PAIN UPPER [None]
  - FLUSHING [None]
  - NASOPHARYNGITIS [None]
  - ALOPECIA [None]
  - WEIGHT DECREASED [None]
  - FATIGUE [None]
